FAERS Safety Report 13769221 (Version 2)
Quarter: 2017Q3

REPORT INFORMATION
  Report Type: Spontaneous
  Country: CL (occurrence: CL)
  Receive Date: 20170719
  Receipt Date: 20170720
  Transmission Date: 20171127
  Serious: Yes (Other)
  Sender: FDA-Public Use
  Company Number: CL-GUERBET-CL-20170001

PATIENT
  Age: 72 Year
  Sex: Female

DRUGS (2)
  1. SALINE [Suspect]
     Active Substance: SODIUM CHLORIDE
     Indication: PRODUCT USED FOR UNKNOWN INDICATION
     Route: 065
     Dates: start: 20170624, end: 20170624
  2. OPTIRAY 320 [Suspect]
     Active Substance: IOVERSOL
     Indication: COMPUTERISED TOMOGRAM
     Route: 042
     Dates: start: 20170624, end: 20170624

REACTIONS (2)
  - Necrosis [Not Recovered/Not Resolved]
  - Blister [Not Recovered/Not Resolved]
